FAERS Safety Report 5001040-4 (Version None)
Quarter: 2006Q2

REPORT INFORMATION
  Report Type: 
  Country: None (occurrence: None)
  Receive Date: 20060512
  Receipt Date: 20060506
  Transmission Date: 20061013
  Serious: Yes (Other)
  Sender: FDA-Public Use
  Company Number: GB-GLAXOSMITHKLINE-B0422850A

PATIENT
  Age: 72 Year
  Sex: Male

DRUGS (6)
  1. DUTASTERIDE [Suspect]
     Indication: PROSTATISM
     Route: 048
     Dates: start: 20051114, end: 20060303
  2. AMLODIPINE [Concomitant]
     Indication: HYPERTENSION
     Dosage: 10MG PER DAY
     Route: 048
     Dates: start: 20040913
  3. ASPIRIN [Concomitant]
     Indication: PERIPHERAL VASCULAR DISORDER
     Dosage: 75MG PER DAY
     Route: 048
     Dates: start: 19970714
  4. ATORVASTATIN CALCIUM [Concomitant]
     Indication: BLOOD CHOLESTEROL INCREASED
     Dosage: 10MG PER DAY
     Route: 048
     Dates: start: 19980601
  5. TAMSULOSIN HCL [Concomitant]
     Indication: PROSTATISM
     Dosage: 400MCG PER DAY
     Route: 048
     Dates: start: 20051102
  6. NAPROXEN [Concomitant]
     Indication: ARTHRALGIA
     Dosage: 500MG PER DAY
     Route: 048
     Dates: start: 19940503

REACTIONS (1)
  - LIVER FUNCTION TEST ABNORMAL [None]
